FAERS Safety Report 5878875-9 (Version None)
Quarter: 2008Q3

REPORT INFORMATION
  Report Type: 
  Country: None (occurrence: None)
  Receive Date: 20080910
  Receipt Date: 20080910
  Transmission Date: 20090109
  Serious: No
  Sender: FDA-Public Use
  Company Number: None

PATIENT
  Age: 60 Year
  Sex: Male

DRUGS (2)
  1. CIPROFLOXACIN [Suspect]
     Indication: CYSTITIS
     Dosage: 250 MG BID PO
     Route: 048
     Dates: start: 20071005, end: 20071019
  2. CIPROFLOXACIN [Suspect]
     Indication: PROSTATITIS
     Dosage: 250 MG BID PO
     Route: 048
     Dates: start: 20071005, end: 20071019

REACTIONS (1)
  - TENDON RUPTURE [None]
